FAERS Safety Report 6527084-9 (Version None)
Quarter: 2010Q1

REPORT INFORMATION
  Report Type: 
  Country: None (occurrence: None)
  Receive Date: 20100105
  Receipt Date: 20100104
  Transmission Date: 20100710
  Serious: No
  Sender: FDA-Public Use
  Company Number: A0834711A

PATIENT
  Age: 28 Year
  Sex: Female

DRUGS (2)
  1. ALLI [Suspect]
     Indication: DRUG USE FOR UNKNOWN INDICATION
     Route: 048
     Dates: start: 20090201, end: 20090501
  2. INSULIN [Concomitant]

REACTIONS (7)
  - ABDOMINAL PAIN UPPER [None]
  - BLOOD GLUCOSE DECREASED [None]
  - DIARRHOEA [None]
  - EATING DISORDER [None]
  - GASTRITIS [None]
  - ILL-DEFINED DISORDER [None]
  - MOBILITY DECREASED [None]
